FAERS Safety Report 13739354 (Version 1)
Quarter: 2017Q3

REPORT INFORMATION
  Report Type: Spontaneous
  Country: US (occurrence: US)
  Receive Date: 20170710
  Receipt Date: 20170710
  Transmission Date: 20171127
  Serious: Yes (Hospitalization)
  Sender: FDA-Public Use
  Company Number: None

PATIENT
  Age: 63 Year
  Sex: Male

DRUGS (3)
  1. TEMOZOLOMIDE 5MG [Suspect]
     Active Substance: TEMOZOLOMIDE
     Indication: BRAIN NEOPLASM MALIGNANT
     Dosage: 5MG QD MON-FRI ORAL
     Route: 048
     Dates: start: 20170512
  2. TEMOZOLOMIDE 14MG [Suspect]
     Active Substance: TEMOZOLOMIDE
     Dosage: 14MG QD MON-FRI ORAL
     Route: 048
     Dates: start: 20170512
  3. TEMOZOLOMIDE. [Concomitant]
     Active Substance: TEMOZOLOMIDE

REACTIONS (1)
  - Hospitalisation [None]

NARRATIVE: CASE EVENT DATE: 20170630
